FAERS Safety Report 25717563 (Version 1)
Quarter: 2025Q3

REPORT INFORMATION
  Report Type: Spontaneous
  Country: US (occurrence: US)
  Receive Date: 20250822
  Receipt Date: 20250822
  Transmission Date: 20251021
  Serious: Yes (Life-Threatening, Hospitalization, Other)
  Sender: ASTELLAS
  Company Number: US-ASTELLAS-2025-AER-045967

PATIENT
  Age: 63 Year
  Sex: Male

DRUGS (6)
  1. TACROLIMUS [Suspect]
     Active Substance: TACROLIMUS
     Indication: Heart transplant
     Dosage: 2 MG TWICE DAILY
     Route: 065
  2. METHYLPREDNISOLONE [Suspect]
     Active Substance: METHYLPREDNISOLONE
     Indication: Heart transplant
     Route: 042
  3. MYCOPHENOLATE MOFETIL [Suspect]
     Active Substance: MYCOPHENOLATE MOFETIL
     Indication: Heart transplant
     Route: 042
  4. MYCOPHENOLATE MOFETIL [Suspect]
     Active Substance: MYCOPHENOLATE MOFETIL
     Route: 042
  5. PREDNISONE [Suspect]
     Active Substance: PREDNISONE
     Indication: Heart transplant
     Route: 065
  6. METHYLENE BLUE [Concomitant]
     Active Substance: METHYLENE BLUE
     Indication: Vasoplegia syndrome
     Route: 065

REACTIONS (8)
  - Pneumonia bacterial [Recovering/Resolving]
  - Citrobacter infection [Recovering/Resolving]
  - Strongyloidiasis [Recovered/Resolved]
  - Enterococcal infection [Recovering/Resolving]
  - Pneumonia escherichia [Recovering/Resolving]
  - Pneumonia [Recovering/Resolving]
  - Pathogen resistance [Recovering/Resolving]
  - Escherichia infection [Recovering/Resolving]
